FAERS Safety Report 5277083-2 (Version None)
Quarter: 2007Q1

REPORT INFORMATION
  Report Type: 
  Country: None (occurrence: None)
  Receive Date: 20070327
  Receipt Date: 20070327
  Transmission Date: 20070707
  Serious: Yes (Life-Threatening, Hospitalization, Disabling, Congenital Anomaly, Other)
  Sender: FDA-Public Use
  Company Number: US-GLAXOSMITHKLINE-A0643724A

PATIENT
  Sex: Male

DRUGS (9)
  1. WELLBUTRIN XL [Suspect]
     Indication: DEPRESSION
     Dosage: 300MG PER DAY
  2. KLONOPIN [Concomitant]
  3. LITHIUM CARBONATE [Concomitant]
  4. EFFEXOR [Concomitant]
  5. TOPAMAX [Concomitant]
  6. ZYPREXA [Concomitant]
     Dates: start: 20050203
  7. RISPERDAL [Concomitant]
  8. AMBIEN [Concomitant]
  9. BENADRYL [Concomitant]

REACTIONS (2)
  - DRUG EXPOSURE DURING PREGNANCY [None]
  - FALLOT'S TETRALOGY [None]
